FAERS Safety Report 7734468-X (Version None)
Quarter: 2011Q3

REPORT INFORMATION
  Report Type: 
  Country: None (occurrence: None)
  Receive Date: 20110907
  Receipt Date: 20110831
  Transmission Date: 20111222
  Serious: Yes (Death, Hospitalization, Other)
  Sender: FDA-Public Use
  Company Number: US-ALEXION PHARMACEUTICALS INC.-A201101208

PATIENT
  Sex: Female
  Weight: 67.574 kg

DRUGS (16)
  1. SOLIRIS [Suspect]
     Indication: PAROXYSMAL NOCTURNAL HAEMOGLOBINURIA
     Dosage: 600 MG, UNK, ONE DOSE
     Route: 042
     Dates: start: 20110803, end: 20110803
  2. LOPRESSOR [Concomitant]
     Dosage: 25 MG, BID
  3. ZINC [Concomitant]
     Dosage: UNK
  4. PRILOSEC [Concomitant]
     Dosage: 20 MG, QD
  5. DANAZOL [Concomitant]
     Dosage: UNK
  6. SUCRALFATE [Concomitant]
     Dosage: UNK
  7. PROVENTIL [Concomitant]
     Dosage: UNK, Q8H
  8. DIFLUCAN [Concomitant]
     Dosage: 200 MG, QD
  9. LOPRESSOR [Concomitant]
     Dosage: 37.5 MG, BID
     Dates: start: 20110801
  10. SYNTHROID [Concomitant]
     Dosage: 125 MCG, QD
  11. ZOFRAN [Concomitant]
     Dosage: UNK, PRN
  12. CARDIZEM [Concomitant]
     Dosage: 360 MG, QD
  13. LASIX [Concomitant]
     Dosage: 60 MG, Q12H, PRN
     Route: 042
  14. PREDNISONE [Concomitant]
     Dosage: UNK
  15. MULTI-VITAMIN [Concomitant]
     Dosage: 1 TABLET, BID
  16. DILTIAZEM [Concomitant]
     Dosage: 120 MG, QD

REACTIONS (10)
  - HAEMOLYTIC ANAEMIA [None]
  - LYMPHOPROLIFERATIVE DISORDER [None]
  - PAIN [None]
  - ALTERED STATE OF CONSCIOUSNESS [None]
  - NEUTROPENIA [None]
  - STENOTROPHOMONAS SEPSIS [None]
  - OEDEMA PERIPHERAL [None]
  - ATRIAL FIBRILLATION [None]
  - HALLUCINATION, VISUAL [None]
  - ASTHENIA [None]
